FAERS Safety Report 5641428-1 (Version None)
Quarter: 2008Q1

REPORT INFORMATION
  Report Type: 
  Country: None (occurrence: None)
  Receive Date: 20080227
  Receipt Date: 20070814
  Transmission Date: 20080703
  Serious: No
  Sender: FDA-Public Use
  Company Number: A0669688A

PATIENT
  Age: 19 Year
  Sex: Female

DRUGS (1)
  1. NICORETTE [Suspect]
     Dates: start: 20070809, end: 20070810

REACTIONS (3)
  - ABDOMINAL PAIN UPPER [None]
  - MALAISE [None]
  - VOMITING [None]
